FAERS Safety Report 14623583 (Version 1)
Quarter: 2018Q1

REPORT INFORMATION
  Report Type: Spontaneous
  Country: ES (occurrence: ES)
  Receive Date: 20180312
  Receipt Date: 20180312
  Transmission Date: 20180509
  Serious: Yes (Hospitalization)
  Sender: FDA-Public Use
  Company Number: ES-SUN PHARMACEUTICAL INDUSTRIES LTD-2018R1-165480

PATIENT
  Age: 83 Year
  Sex: Male

DRUGS (4)
  1. CLOPIDOGREL [Suspect]
     Active Substance: CLOPIDOGREL BISULFATE
     Indication: ATRIAL FIBRILLATION
     Dosage: 0-1-0
     Route: 048
     Dates: start: 20140920
  2. SINTROM [Interacting]
     Active Substance: ACENOCOUMAROL
     Indication: ATRIAL FIBRILLATION
     Dosage: SEGUN PAUTA
     Route: 048
     Dates: start: 20150914, end: 20170920
  3. BISOPROLOL AUROVITAS COMPRIMIDOS RECUBIERTOS CON PELICULA EFG [Concomitant]
     Indication: ATRIAL FIBRILLATION
     Dosage: 1-0-0
     Route: 048
     Dates: start: 20170603
  4. ATORVASTATINA ABEX COMPRIMIDOS RECUBIERTOS CON PELICULA EFG [Concomitant]
     Indication: HYPERCHOLESTEROLAEMIA
     Dosage: UNK
     Route: 048
     Dates: start: 20141219

REACTIONS (3)
  - Duodenal ulcer haemorrhage [Recovered/Resolved]
  - Hypocoagulable state [Recovered/Resolved]
  - Drug interaction [Recovered/Resolved]

NARRATIVE: CASE EVENT DATE: 20170920
